FAERS Safety Report 21898258 (Version 1)
Quarter: 2023Q1

REPORT INFORMATION
  Report Type: Spontaneous
  Country: SE (occurrence: SE)
  Receive Date: 20230123
  Receipt Date: 20230123
  Transmission Date: 20230418
  Serious: Yes (Other)
  Sender: FDA-Public Use
  Company Number: None

PATIENT
  Age: 26 Year
  Sex: Male

DRUGS (2)
  1. SERTRALINE [Suspect]
     Active Substance: SERTRALINE HYDROCHLORIDE
     Indication: Anxiety
     Dosage: UNK
     Route: 065
     Dates: start: 202208, end: 202211
  2. ATARAX [Concomitant]
     Active Substance: HYDROXYZINE HYDROCHLORIDE
     Dosage: UNK
     Route: 065

REACTIONS (4)
  - Intentional self-injury [Not Recovered/Not Resolved]
  - Headache [Not Recovered/Not Resolved]
  - Restlessness [Not Recovered/Not Resolved]
  - Nightmare [Not Recovered/Not Resolved]
